FAERS Safety Report 9695425 (Version 2)
Quarter: 2013Q4

REPORT INFORMATION
  Report Type: Report from Study
  Country: US (occurrence: US)
  Receive Date: 20131119
  Receipt Date: 20131126
  Transmission Date: 20140711
  Serious: Yes (Death, Hospitalization, Other)
  Sender: FDA-Public Use
  Company Number: PHEH2013US023790

PATIENT
  Sex: Male

DRUGS (2)
  1. EXELON PATCH [Suspect]
     Indication: PARKINSON^S DISEASE
     Dosage: 4.6 MG, QD
     Route: 062
  2. EXELON PATCH [Suspect]
     Dosage: 9.2 MG (2 PATCHES OF 4.6 MG)
     Route: 062

REACTIONS (5)
  - Death [Fatal]
  - General physical health deterioration [Unknown]
  - Cystitis [Unknown]
  - Fall [Unknown]
  - Drug administration error [Unknown]
